FAERS Safety Report 16494086 (Version 1)
Quarter: 2019Q2

REPORT INFORMATION
  Report Type: Report from Study
  Country: IT (occurrence: IT)
  Receive Date: 20190628
  Receipt Date: 20190628
  Transmission Date: 20190711
  Serious: Yes (Other)
  Sender: FDA-Public Use
  Company Number: IT-EMD SERONO-E2B_90068674

PATIENT
  Age: 29 Year
  Sex: Female

DRUGS (4)
  1. TRIPTORELIN [Suspect]
     Active Substance: TRIPTORELIN
     Indication: CONTROLLED OVARIAN STIMULATION
     Route: 058
  2. OVITRELLE [Suspect]
     Active Substance: CHORIOGONADOTROPIN ALFA
     Indication: CONTROLLED OVARIAN STIMULATION
     Dosage: FORM STRENGTH: 250 MICROGRAMS/0.5 ML SOLUTION FOR INJECTION IN PREFILLED SYRINGE
     Route: 058
  3. PROGESTERONE. [Suspect]
     Active Substance: PROGESTERONE
     Indication: CONTROLLED OVARIAN STIMULATION
     Route: 058
  4. FOLLITROPIN ALFA [Suspect]
     Active Substance: FOLLITROPIN
     Indication: CONTROLLED OVARIAN STIMULATION
     Route: 058

REACTIONS (1)
  - Jugular vein thrombosis [Recovering/Resolving]

NARRATIVE: CASE EVENT DATE: 20190121
